FAERS Safety Report 14056705 (Version 6)
Quarter: 2018Q2

REPORT INFORMATION
  Report Type: Spontaneous
  Country: JP (occurrence: JP)
  Receive Date: 20171006
  Receipt Date: 20180524
  Transmission Date: 20180711
  Serious: Yes (Death, Hospitalization, Other)
  Sender: FDA-Public Use
  Company Number: JP-009507513-1710JPN000211J

PATIENT
  Age: 65 Year
  Sex: Male
  Weight: 71 kg

DRUGS (3)
  1. CISPLATIN. [Concomitant]
     Active Substance: CISPLATIN
     Indication: MALIGNANT MELANOMA
     Dosage: 120 MG, QD
     Route: 013
     Dates: start: 20170608, end: 20170608
  2. DECADRON [Concomitant]
     Active Substance: DEXAMETHASONE
     Indication: MALIGNANT MELANOMA
     Dosage: 2.0 MG, QD
     Route: 048
     Dates: start: 20170620
  3. KEYTRUDA [Suspect]
     Active Substance: PEMBROLIZUMAB
     Indication: MALIGNANT MELANOMA
     Dosage: 2 MG/KG, Q3W
     Route: 041
     Dates: start: 20170524, end: 20170808

REACTIONS (3)
  - Hepatic enzyme increased [Unknown]
  - Malignant neoplasm progression [Fatal]
  - Hypothyroidism [Recovering/Resolving]

NARRATIVE: CASE EVENT DATE: 20170622
